FAERS Safety Report 8090965-1 (Version None)
Quarter: 2012Q1

REPORT INFORMATION
  Report Type: 
  Country: None (occurrence: None)
  Receive Date: 20120128
  Receipt Date: 20110725
  Transmission Date: 20120608
  Serious: No
  Sender: FDA-Public Use
  Company Number: US-ABBOTT-11P-163-0842931-00

PATIENT
  Sex: Female
  Weight: 68.1 kg

DRUGS (19)
  1. PLAVIX [Concomitant]
     Indication: DRUG THERAPY
  2. FOLIC ACID [Concomitant]
     Indication: VITAMIN SUPPLEMENTATION
  3. HUMIRA [Suspect]
     Indication: RHEUMATOID ARTHRITIS
     Dates: start: 20100601, end: 20110301
  4. ZANAFLEX [Concomitant]
     Indication: INSOMNIA
  5. MELOXICAM [Concomitant]
     Indication: RHEUMATOID ARTHRITIS
  6. MULTI-VITAMIN [Concomitant]
     Indication: VITAMIN SUPPLEMENTATION
  7. VITAMIN D [Concomitant]
     Indication: VITAMIN SUPPLEMENTATION
  8. ASPIRIN [Concomitant]
     Indication: PROPHYLAXIS
  9. TRAMADOL HCL [Concomitant]
     Indication: PAIN
  10. LISINOPRIL [Concomitant]
     Indication: HYPERTENSION
  11. METHOTREXATE [Concomitant]
     Indication: RHEUMATOID ARTHRITIS
  12. BACLOFEN [Concomitant]
     Indication: FIBROMYALGIA
  13. NITROGLYCERIN [Concomitant]
     Indication: CHEST PAIN
     Route: 048
  14. TOPAMAX [Concomitant]
     Indication: MIGRAINE
  15. DOCUSATE SODIUM [Concomitant]
     Indication: DRUG THERAPY
  16. PREDNISONE TAB [Concomitant]
     Indication: RHEUMATOID ARTHRITIS
  17. KLONOPIN [Concomitant]
     Indication: ANXIETY
  18. HUMIRA [Suspect]
     Dates: start: 20110301
  19. LORTAB [Concomitant]
     Indication: PAIN

REACTIONS (9)
  - PYREXIA [None]
  - WEIGHT DECREASED [None]
  - NASOPHARYNGITIS [None]
  - DRUG EFFECT DECREASED [None]
  - MALAISE [None]
  - PNEUMONIA [None]
  - FATIGUE [None]
  - NASAL CONGESTION [None]
  - COUGH [None]
